FAERS Safety Report 8601947-2 (Version None)
Quarter: 2012Q3

REPORT INFORMATION
  Report Type: 
  Country: None (occurrence: None)
  Receive Date: 20120817
  Receipt Date: 20120605
  Transmission Date: 20120928
  Serious: No
  Sender: FDA-Public Use
  Company Number: US-BRISTOL-MYERS SQUIBB COMPANY-16664476

PATIENT
  Age: 40 Year
  Sex: Female

DRUGS (3)
  1. SYNTHROID [Concomitant]
  2. SPRYCEL [Suspect]
  3. HYDROCORTISONE [Concomitant]

REACTIONS (3)
  - FLUID RETENTION [None]
  - MIGRAINE [None]
  - RASH [None]
